FAERS Safety Report 16847016 (Version 2)
Quarter: 2020Q4

REPORT INFORMATION
  Report Type: Spontaneous
  Country: US (occurrence: US)
  Receive Date: 20190924
  Receipt Date: 20201002
  Transmission Date: 20210113
  Serious: Yes (Disabling)
  Sender: FDA-Public Use
  Company Number: US-TEVA-2019-US-1111401

PATIENT

DRUGS (3)
  1. DOCEFREZ [Suspect]
     Active Substance: DOCETAXEL ANHYDROUS
     Route: 065
     Dates: start: 2016, end: 2016
  2. DOCETAXEL. [Suspect]
     Active Substance: DOCETAXEL
     Route: 065
     Dates: start: 20160721, end: 20160922
  3. TAXOTERE [Suspect]
     Active Substance: DOCETAXEL
     Route: 065
     Dates: start: 2016, end: 2016

REACTIONS (1)
  - Alopecia [Not Recovered/Not Resolved]
